FAERS Safety Report 6744402-7 (Version None)
Quarter: 2010Q2

REPORT INFORMATION
  Report Type: 
  Country: None (occurrence: None)
  Receive Date: 20100527
  Receipt Date: 20100517
  Transmission Date: 20101027
  Serious: Yes (Hospitalization)
  Sender: FDA-Public Use
  Company Number: US-PFIZER INC-2010019225

PATIENT
  Sex: Female
  Weight: 63.5 kg

DRUGS (1)
  1. SUTENT [Suspect]
     Indication: NEOPLASM MALIGNANT
     Dosage: 50 MG, 1X/DAY, FOR 28DAYS EVEY 42 DAYS
     Route: 048
     Dates: start: 20100125

REACTIONS (2)
  - HYPERHIDROSIS [None]
  - TONGUE DISORDER [None]
